FAERS Safety Report 11631855 (Version 1)
Quarter: 2015Q4

REPORT INFORMATION
  Report Type: Spontaneous
  Country: ES (occurrence: ES)
  Receive Date: 20151015
  Receipt Date: 20151015
  Transmission Date: 20160304
  Serious: Yes (Other)
  Sender: FDA-Public Use
  Company Number: ES-AUROBINDO-AUR-APL-2015-09035

PATIENT
  Sex: Female

DRUGS (1)
  1. DONEPEZIL 5 MG [Suspect]
     Active Substance: DONEPEZIL
     Indication: DEMENTIA ALZHEIMER^S TYPE
     Dosage: 5 MG, UNK
     Route: 065

REACTIONS (2)
  - Nocturnal fear [Recovered/Resolved]
  - Hallucination, visual [Recovered/Resolved]
